FAERS Safety Report 11938252 (Version 2)
Quarter: 2016Q1

REPORT INFORMATION
  Report Type: Spontaneous
  Country: IT (occurrence: IT)
  Receive Date: 20160122
  Receipt Date: 20160215
  Transmission Date: 20160526
  Serious: Yes (Death)
  Sender: FDA-Public Use
  Company Number: IT-SUN PHARMACEUTICAL INDUSTRIES LTD-2016RR-110188

PATIENT

DRUGS (2)
  1. CARBOPLATIN. [Suspect]
     Active Substance: CARBOPLATIN
     Indication: SQUAMOUS CELL CARCINOMA OF THE TONGUE
     Dosage: 180 MG, WEEKLY
     Route: 042
     Dates: start: 20151015, end: 20151029
  2. CETUXIMAB [Suspect]
     Active Substance: CETUXIMAB
     Indication: SQUAMOUS CELL CARCINOMA OF THE TONGUE
     Dosage: 400 MG/M2, WEEKLY
     Route: 042

REACTIONS (1)
  - Respiratory failure [Fatal]

NARRATIVE: CASE EVENT DATE: 20151112
